FAERS Safety Report 25253546 (Version 1)
Quarter: 2025Q2

REPORT INFORMATION
  Report Type: Spontaneous
  Country: AU (occurrence: AU)
  Receive Date: 20250430
  Receipt Date: 20250430
  Transmission Date: 20250717
  Serious: Yes (Other)
  Sender: CSL BEHRING
  Company Number: AU-BEH-2025202917

PATIENT
  Age: 5 Year
  Sex: Male

DRUGS (4)
  1. HUMAN IMMUNOGLOBULIN G [Suspect]
     Active Substance: HUMAN IMMUNOGLOBULIN G
     Indication: Dermatomyositis
     Route: 042
     Dates: start: 202501
  2. METHOTREXATE SODIUM [Suspect]
     Active Substance: METHOTREXATE SODIUM
     Indication: Dermatomyositis
     Route: 058
     Dates: start: 202501
  3. METHYLPREDNISOLONE SODIUM SUCCINATE [Suspect]
     Active Substance: METHYLPREDNISOLONE SODIUM SUCCINATE
     Indication: Dermatomyositis
     Dosage: UNK UNK, QW
     Route: 042
     Dates: start: 202501
  4. PREDNISOLONE [Suspect]
     Active Substance: PREDNISOLONE
     Indication: Dermatomyositis
     Dosage: 2 MG/KG, QD
     Route: 048
     Dates: start: 202501

REACTIONS (4)
  - Hypertension [Unknown]
  - Dermatomyositis [Unknown]
  - Drug ineffective for unapproved indication [Unknown]
  - Off label use [Unknown]
